FAERS Safety Report 16325768 (Version 1)
Quarter: 2019Q2

REPORT INFORMATION
  Report Type: Spontaneous
  Country: US (occurrence: US)
  Receive Date: 20190517
  Receipt Date: 20190517
  Transmission Date: 20190711
  Serious: No
  Sender: FDA-Public Use
  Company Number: US-COLLEGIUM PHARMACEUTICAL, INC.-2019CGM00128

PATIENT
  Age: 47 Year
  Sex: Male
  Weight: 90.7 kg

DRUGS (19)
  1. ISENTRESS [Concomitant]
     Active Substance: RALTEGRAVIR POTASSIUM
     Dosage: 400 MG, 2X/DAY
     Route: 048
  2. GABAPENTIN. [Concomitant]
     Active Substance: GABAPENTIN
     Dosage: 400 MG, 3X/DAY
     Route: 048
  3. TRIAMTERENE AND HYDROCHLOROTHIAZIDE [Concomitant]
     Active Substance: HYDROCHLOROTHIAZIDE\TRIAMTERENE
     Dosage: UNK, 1X/DAY
     Route: 048
  4. TURMERIC [Concomitant]
     Active Substance: HERBALS\TURMERIC
  5. BACLOFEN. [Concomitant]
     Active Substance: BACLOFEN
  6. ANDROGEL [Concomitant]
     Active Substance: TESTOSTERONE
  7. THORAZINE [Concomitant]
     Active Substance: CHLORPROMAZINE
     Dosage: 100 MG, 1X/DAY AT BEDTIME
     Route: 048
  8. XANAX [Concomitant]
     Active Substance: ALPRAZOLAM
     Dosage: UNK, AS NEEDED
     Route: 048
  9. POTASSIUM [Concomitant]
     Active Substance: POTASSIUM
     Dosage: UNK, 2X/DAY
     Route: 048
  10. MULTIVITAMIN [Concomitant]
     Active Substance: VITAMINS
  11. WELLBUTRIN [Concomitant]
     Active Substance: BUPROPION HYDROCHLORIDE
     Dosage: 100 MG, 2X/DAY
     Route: 048
  12. MELATONIN [Concomitant]
     Active Substance: MELATONIN
  13. DESCOVY [Concomitant]
     Active Substance: EMTRICITABINE\TENOFOVIR ALAFENAMIDE FUMARATE
     Dosage: 1 DOSAGE UNITS, 1X/DAY
     Route: 048
  14. SUPER B COMPLEX [Concomitant]
     Active Substance: CYANOCOBALAMIN\DEXPANTHENOL\NIACINAMIDE\PYRIDOXINE HYDROCHLORIDE\RIBOFLAVIN 5^-PHOSPHATE SODIUM\THIAMINE HYDROCHLORIDE\VITAMIN B COMPLEX
  15. PHENERGAN [Concomitant]
     Active Substance: PROMETHAZINE HYDROCHLORIDE
     Dosage: UNK, AS NEEDED
     Route: 048
  16. ZOLPIDEM [Concomitant]
     Active Substance: ZOLPIDEM\ZOLPIDEM TARTRATE
  17. FLAXSEED [Concomitant]
     Active Substance: FLAX SEED
  18. XTAMPZA ER [Suspect]
     Active Substance: OXYCODONE
     Indication: PAIN
     Dosage: 18 MG, 2X/DAY
     Route: 048
     Dates: start: 20190330
  19. MESTINON [Concomitant]
     Active Substance: PYRIDOSTIGMINE BROMIDE
     Dosage: 60 MG, AS NEEDED
     Route: 048

REACTIONS (1)
  - Therapeutic product effect incomplete [Not Recovered/Not Resolved]

NARRATIVE: CASE EVENT DATE: 20190330
